FAERS Safety Report 23130393 (Version 1)
Quarter: 2023Q4

REPORT INFORMATION
  Report Type: Spontaneous
  Country: US (occurrence: US)
  Receive Date: 20231031
  Receipt Date: 20231031
  Transmission Date: 20240110
  Serious: No
  Sender: FDA-Public Use
  Company Number: US-UNIQUE PHARMACEUTICAL LABORATORIES, A DIV. OF JBCPL-2023UNI000020

PATIENT
  Age: 45 Year
  Sex: Female
  Weight: 106.1 kg

DRUGS (3)
  1. ATENOLOL [Suspect]
     Active Substance: ATENOLOL
     Indication: Arrhythmia
     Dosage: 50 MILLIGRAM, QD, MORNING
     Route: 048
     Dates: start: 20230424, end: 20230427
  2. ATENOLOL [Suspect]
     Active Substance: ATENOLOL
     Indication: Hypertension
  3. ATENOLOL [Suspect]
     Active Substance: ATENOLOL
     Indication: Supraventricular tachycardia

REACTIONS (7)
  - Feeling abnormal [Unknown]
  - Fatigue [Unknown]
  - Hypersomnia [Unknown]
  - Lethargy [Unknown]
  - Visual impairment [Unknown]
  - Dizziness [Unknown]
  - Product use in unapproved indication [Unknown]

NARRATIVE: CASE EVENT DATE: 20230425
